FAERS Safety Report 7598324-2 (Version None)
Quarter: 2011Q3

REPORT INFORMATION
  Report Type: 
  Country: None (occurrence: None)
  Receive Date: 20110708
  Receipt Date: 20110627
  Transmission Date: 20111222
  Serious: Yes (Other)
  Sender: FDA-Public Use
  Company Number: PHHY2011DE37257

PATIENT
  Age: 33 Year
  Sex: Female
  Weight: 63 kg

DRUGS (7)
  1. VOLTAREN [Suspect]
     Indication: HEADACHE
     Dosage: 1-2 TABLETS PER DAY
     Route: 048
     Dates: start: 20010101, end: 20110501
  2. IBUPROFEN [Suspect]
     Dosage: 400 MG, UNK
     Route: 048
  3. ASCORBIC ACID [Concomitant]
     Dosage: 500 MG, UNK
     Dates: start: 20110301
  4. ASPIRIN [Suspect]
     Dosage: 500 MG, UNK
     Route: 048
  5. FOLIO FORTE [Concomitant]
     Dosage: 150 UG, UNK
     Route: 048
  6. FOLIO FORTE [Concomitant]
     Dosage: 800 UG, UNK
     Route: 048
     Dates: start: 20110401
  7. FOLIO FORTE [Concomitant]
     Dosage: 10 UG, UNK
     Route: 048

REACTIONS (6)
  - SCAR [None]
  - CAPILLARITIS [None]
  - SKIN HYPERPIGMENTATION [None]
  - SKIN ULCER [None]
  - CUTANEOUS VASCULITIS [None]
  - THROMBOSIS [None]
